FAERS Safety Report 7669662-X (Version None)
Quarter: 2011Q3

REPORT INFORMATION
  Report Type: 
  Country: None (occurrence: None)
  Receive Date: 20110808
  Receipt Date: 20110726
  Transmission Date: 20111222
  Serious: Yes (Hospitalization, Other)
  Sender: FDA-Public Use
  Company Number: PHHY2011US67745

PATIENT
  Sex: Female

DRUGS (7)
  1. GLEEVEC [Suspect]
     Dosage: 400 MG, UNK
  2. VERAPAMIL [Concomitant]
  3. SYNTHROID [Concomitant]
  4. POTASSIUM CHLORIDE [Concomitant]
  5. PRAVASTATIN [Concomitant]
  6. GLEEVEC [Suspect]
     Dosage: 400 MG, UNK
  7. FUROSEMIDE [Concomitant]

REACTIONS (5)
  - NASOPHARYNGITIS [None]
  - ULCER [None]
  - SUPRAVENTRICULAR TACHYCARDIA [None]
  - LEUKAEMIA RECURRENT [None]
  - ATRIAL FIBRILLATION [None]
